FAERS Safety Report 8174773-9 (Version None)
Quarter: 2012Q1

REPORT INFORMATION
  Report Type: 
  Country: None (occurrence: None)
  Receive Date: 20120229
  Receipt Date: 20120228
  Transmission Date: 20120608
  Serious: Yes (Hospitalization)
  Sender: FDA-Public Use
  Company Number: US-PFIZER INC-2012048108

PATIENT
  Sex: Female
  Weight: 163 kg

DRUGS (10)
  1. TRACLEER [Concomitant]
     Indication: PULMONARY ARTERIAL HYPERTENSION
     Dosage: 125 MG, 2X/DAY
  2. DEPO-PROVERA [Suspect]
     Indication: MENSTRUAL DISCOMFORT
  3. COUMADIN [Concomitant]
     Indication: PULMONARY EMBOLISM
     Dosage: DAILY
  4. JANUVIA [Concomitant]
     Indication: DIABETES MELLITUS
     Dosage: 100 MG, 1X/DAY
  5. DEMADEX [Concomitant]
     Indication: LYMPHOEDEMA
     Dosage: 20 MG, DAILY
  6. DEXLANSOPRAZOLE [Concomitant]
     Indication: GASTROOESOPHAGEAL REFLUX DISEASE
     Dosage: 60 MG, 1X/DAY
  7. REVATIO [Concomitant]
     Indication: PULMONARY ARTERIAL HYPERTENSION
     Dosage: 20 MG, 3X/DAY
  8. DEPO-PROVERA [Suspect]
     Indication: OFF LABEL USE
     Dosage: 200 MG, MONTHLY
     Dates: start: 20090101
  9. DEPO-PROVERA [Suspect]
     Indication: UTERINE LEIOMYOMA
  10. FERROUS SULFATE [Concomitant]
     Indication: ANAEMIA
     Dosage: 325 MG, 2X/DAY

REACTIONS (2)
  - DRUG DOSE OMISSION [None]
  - CELLULITIS [None]
